FAERS Safety Report 4919180-4 (Version None)
Quarter: 2006Q1

REPORT INFORMATION
  Report Type: 
  Country: None (occurrence: None)
  Receive Date: 20060222
  Receipt Date: 20060215
  Transmission Date: 20060701
  Serious: Yes (Death, Hospitalization)
  Sender: FDA-Public Use
  Company Number: US-SANOFI-SYNTHELABO-F03200600029

PATIENT
  Age: 795 Month
  Sex: Male

DRUGS (3)
  1. OXALIPLATIN [Suspect]
     Indication: ADENOCARCINOMA PANCREAS
     Dosage: 100 MG/M2, DAY 2 + 16
     Route: 042
     Dates: start: 20060110
  2. AVASTIN [Suspect]
     Indication: ADENOCARCINOMA PANCREAS
     Dosage: 930 MG, DAYS 1 + 15
     Route: 042
     Dates: start: 20060110
  3. GEMCITABINE [Suspect]
     Indication: ADENOCARCINOMA PANCREAS
     Dosage: 1000 MG/M2, DAYS 1+15
     Route: 042
     Dates: start: 20060110

REACTIONS (4)
  - DISEASE PROGRESSION [None]
  - INFECTION [None]
  - MALIGNANT ASCITES [None]
  - TUMOUR PERFORATION [None]
